FAERS Safety Report 8346128-5 (Version None)
Quarter: 2012Q2

REPORT INFORMATION
  Report Type: 
  Country: None (occurrence: None)
  Receive Date: 20120509
  Receipt Date: 20120427
  Transmission Date: 20120825
  Serious: Yes (Hospitalization, Other)
  Sender: FDA-Public Use
  Company Number: US-JNJFOC-20120500831

PATIENT
  Sex: Female
  Weight: 135.17 kg

DRUGS (7)
  1. REMICADE [Suspect]
     Route: 042
     Dates: start: 20120410
  2. REMICADE [Suspect]
     Indication: RHEUMATOID ARTHRITIS
     Route: 042
     Dates: start: 20100101, end: 20111101
  3. REMICADE [Suspect]
     Route: 042
     Dates: start: 20120301
  4. COUMADIN [Concomitant]
     Indication: PULMONARY EMBOLISM
     Route: 048
  5. REMICADE [Suspect]
     Indication: COLITIS ULCERATIVE
     Route: 042
     Dates: start: 20100101, end: 20111101
  6. REMICADE [Suspect]
     Route: 042
     Dates: start: 20120301
  7. REMICADE [Suspect]
     Route: 042
     Dates: start: 20120410

REACTIONS (9)
  - RHEUMATOID ARTHRITIS [None]
  - PNEUMONIA [None]
  - PERICARDITIS [None]
  - THERAPEUTIC RESPONSE DECREASED [None]
  - RESPIRATORY FAILURE [None]
  - CARPAL TUNNEL SYNDROME [None]
  - JOINT DISLOCATION [None]
  - FEMUR FRACTURE [None]
  - OSTEOPOROSIS [None]
